FAERS Safety Report 5975725-7 (Version None)
Quarter: 2008Q4

REPORT INFORMATION
  Report Type: 
  Country: None (occurrence: None)
  Receive Date: 20081202
  Receipt Date: 20081121
  Transmission Date: 20090506
  Serious: Yes (Other)
  Sender: FDA-Public Use
  Company Number: PHHY2008FR29457

PATIENT
  Age: 67 Year
  Sex: Female

DRUGS (1)
  1. LESCOL [Suspect]
     Indication: HYPERCHOLESTEROLAEMIA
     Dosage: 80 MG
     Dates: start: 20030901, end: 20080901

REACTIONS (2)
  - CARCINOEMBRYONIC ANTIGEN INCREASED [None]
  - GASTRIC CANCER [None]
